FAERS Safety Report 14661487 (Version 1)
Quarter: 2018Q1

REPORT INFORMATION
  Report Type: Spontaneous
  Country: BR (occurrence: BR)
  Receive Date: 20180320
  Receipt Date: 20180320
  Transmission Date: 20180509
  Serious: Yes (Death, Hospitalization, Other)
  Sender: FDA-Public Use
  Company Number: BR-ALEXION PHARMACEUTICALS INC.-A201203326

PATIENT
  Age: 49 Year
  Sex: Female

DRUGS (2)
  1. SOLIRIS [Suspect]
     Active Substance: ECULIZUMAB
     Indication: PAROXYSMAL NOCTURNAL HAEMOGLOBINURIA
     Dosage: UNK
     Route: 042
     Dates: start: 20111010, end: 20111205
  2. SOLIRIS [Suspect]
     Active Substance: ECULIZUMAB
     Dosage: UNK
     Route: 065

REACTIONS (9)
  - Gastric haemorrhage [Fatal]
  - Cellulitis [Unknown]
  - Facial pain [Unknown]
  - Hyperglycaemia [Unknown]
  - Haemoglobinuria [Unknown]
  - Haemolysis [Unknown]
  - Oesophageal haemorrhage [Fatal]
  - Infection [Unknown]
  - Headache [Unknown]

NARRATIVE: CASE EVENT DATE: 201204
